FAERS Safety Report 7066847-0 (Version None)
Quarter: 2010Q4

REPORT INFORMATION
  Report Type: 
  Country: None (occurrence: None)
  Receive Date: 20101027
  Receipt Date: 20100901
  Transmission Date: 20110411
  Serious: No
  Sender: FDA-Public Use
  Company Number: US-WYE-H17392410

PATIENT
  Sex: Female
  Weight: 68.1 kg

DRUGS (6)
  1. PREMPRO [Suspect]
     Indication: MENOPAUSE
     Dosage: NOT SPECIFIED
     Route: 048
     Dates: start: 19930101
  2. PREMPRO [Suspect]
     Dosage: EVERY OTHER DAY
     Route: 048
  3. PREMPRO [Suspect]
     Dosage: ^NEXT HIGHER DOSE^
     Route: 048
     Dates: start: 20090101
  4. PREMPRO [Suspect]
     Dosage: ^NEXT LOWER DOSE, 0.45/1.5^
     Route: 048
  5. LEVOTHYROXINE [Concomitant]
  6. BONIVA [Concomitant]

REACTIONS (2)
  - DRUG EFFECT DECREASED [None]
  - INAPPROPRIATE SCHEDULE OF DRUG ADMINISTRATION [None]
